FAERS Safety Report 24129558 (Version 1)
Quarter: 2024Q3

REPORT INFORMATION
  Report Type: Spontaneous
  Country: CN (occurrence: CN)
  Receive Date: 20240724
  Receipt Date: 20240724
  Transmission Date: 20241016
  Serious: Yes (Other)
  Sender: AMGEN
  Company Number: CN-SERVIER-S24008606

PATIENT

DRUGS (2)
  1. IVABRADINE [Suspect]
     Active Substance: IVABRADINE
     Indication: Microvascular coronary artery disease
     Dosage: 1 DF, BID
     Route: 048
  2. NICORANDIL [Concomitant]
     Active Substance: NICORANDIL
     Indication: Microvascular coronary artery disease
     Dosage: 1 DF, BID
     Route: 048

REACTIONS (3)
  - Arrhythmia [Unknown]
  - Cardiac dysfunction [Unknown]
  - Drug ineffective [Recovered/Resolved]
